FAERS Safety Report 6805970-X (Version None)
Quarter: 2010Q2

REPORT INFORMATION
  Report Type: 
  Country: None (occurrence: None)
  Receive Date: 20100629
  Receipt Date: 20071213
  Transmission Date: 20101027
  Serious: Yes (Other)
  Sender: FDA-Public Use
  Company Number: US-PFIZER INC-2007076378

PATIENT
  Sex: Male

DRUGS (10)
  1. TIKOSYN [Suspect]
     Indication: ATRIAL FIBRILLATION
     Dates: start: 20070101
  2. DILTIAZEM [Suspect]
     Dosage: DAILY
  3. DICLOFENAC SODIUM [Suspect]
     Dates: end: 20070101
  4. BENAZEPRIL HYDROCHLORIDE [Concomitant]
  5. FLOMAX [Concomitant]
  6. COUMADIN [Concomitant]
  7. DOXAZOSIN MESYLATE [Concomitant]
  8. METHOCARBAMOL [Concomitant]
  9. TORSEMIDE [Concomitant]
  10. XOPENEX [Concomitant]

REACTIONS (6)
  - ABNORMAL DREAMS [None]
  - ATRIAL FLUTTER [None]
  - DYSPNOEA [None]
  - OEDEMA PERIPHERAL [None]
  - TACHYCARDIA [None]
  - WEIGHT INCREASED [None]
